FAERS Safety Report 6357174-5 (Version None)
Quarter: 2009Q3

REPORT INFORMATION
  Report Type: 
  Country: None (occurrence: None)
  Receive Date: 20090911
  Receipt Date: 20090902
  Transmission Date: 20100115
  Serious: No
  Sender: FDA-Public Use
  Company Number: 2009010097

PATIENT
  Sex: Female

DRUGS (2)
  1. FENTORA [Suspect]
     Indication: POST-TRAUMATIC HEADACHE
     Dosage: (200 MCG), BU
     Route: 002
  2. KADIAN [Concomitant]

REACTIONS (1)
  - WRONG TECHNIQUE IN DRUG USAGE PROCESS [None]
